FAERS Safety Report 15196909 (Version 3)
Quarter: 2018Q4

REPORT INFORMATION
  Report Type: Spontaneous
  Country: CA (occurrence: CA)
  Receive Date: 20180725
  Receipt Date: 20181022
  Transmission Date: 20190204
  Serious: Yes (Other)
  Sender: FDA-Public Use
  Company Number: CA-PFIZER INC-2018297259

PATIENT
  Age: 42 Year
  Sex: Female

DRUGS (14)
  1. XOLAIR [Suspect]
     Active Substance: OMALIZUMAB
     Indication: CHRONIC SPONTANEOUS URTICARIA
     Dosage: 300 MG, Q4WEEKS
     Route: 058
     Dates: start: 20150818
  2. XOLAIR [Suspect]
     Active Substance: OMALIZUMAB
     Dosage: 300 MG, Q4WEEKS
     Route: 058
     Dates: start: 20180509
  3. REACTINE [CETIRIZINE HYDROCHLORIDE] [Concomitant]
     Active Substance: CETIRIZINE HYDROCHLORIDE
     Indication: CHRONIC SPONTANEOUS URTICARIA
     Dosage: UNK, QD
     Route: 048
  4. PANTOPRAZOLE [Suspect]
     Active Substance: PANTOPRAZOLE
     Indication: GASTRIC DISORDER
     Dosage: 1 DF, 1X/DAY
     Route: 048
  5. HYDROXYCHLOROQUINE [Concomitant]
     Active Substance: HYDROXYCHLOROQUINE
     Indication: CHRONIC SPONTANEOUS URTICARIA
     Dosage: UNK, 2X/DAY
     Route: 048
  6. XOLAIR [Suspect]
     Active Substance: OMALIZUMAB
     Dosage: 300 UNK
     Route: 058
     Dates: start: 20170705
  7. XOLAIR [Suspect]
     Active Substance: OMALIZUMAB
     Dosage: 300 MG, UNK
     Route: 058
     Dates: start: 20171122
  8. XOLAIR [Suspect]
     Active Substance: OMALIZUMAB
     Dosage: 300 MG, Q4WEEKS
     Route: 058
     Dates: start: 20151030
  9. XOLAIR [Suspect]
     Active Substance: OMALIZUMAB
     Dosage: 300 UNK
     Route: 058
     Dates: start: 20170607
  10. AMITRIPTYLINE [Concomitant]
     Active Substance: AMITRIPTYLINE
     Indication: OESOPHAGEAL DISORDER
     Dosage: UNK, 1X/DAY
     Route: 048
  11. XOLAIR [Suspect]
     Active Substance: OMALIZUMAB
     Dosage: 300 MG, Q4WEEKS
     Route: 058
     Dates: start: 20170412
  12. XOLAIR [Suspect]
     Active Substance: OMALIZUMAB
     Dosage: 300 MG, UNK
     Route: 058
     Dates: start: 20171025
  13. PREDNISONE. [Concomitant]
     Active Substance: PREDNISONE
     Indication: CHRONIC SPONTANEOUS URTICARIA
     Dosage: UNK, 2X/DAY
     Route: 048
  14. ZANTAC [Concomitant]
     Active Substance: RANITIDINE HYDROCHLORIDE
     Indication: CHRONIC SPONTANEOUS URTICARIA
     Dosage: UNK UNK, QD
     Route: 048

REACTIONS (14)
  - Asthenia [Recovered/Resolved]
  - Bursitis [Recovering/Resolving]
  - Injection site pain [Recovered/Resolved]
  - Joint stiffness [Unknown]
  - Nasal congestion [Unknown]
  - Lower respiratory tract infection [Recovering/Resolving]
  - Oropharyngeal pain [Unknown]
  - Arthralgia [Not Recovered/Not Resolved]
  - Injection site pain [Recovered/Resolved]
  - Dizziness [Unknown]
  - Urticaria [Unknown]
  - Tendonitis [Unknown]
  - Heart rate increased [Not Recovered/Not Resolved]
  - Musculoskeletal stiffness [Unknown]

NARRATIVE: CASE EVENT DATE: 2017
